FAERS Safety Report 6014886-0 (Version None)
Quarter: 2008Q4

REPORT INFORMATION
  Report Type: 
  Country: None (occurrence: None)
  Receive Date: 20081219
  Receipt Date: 20081212
  Transmission Date: 20090506
  Serious: Yes (Death)
  Sender: FDA-Public Use
  Company Number: US-GILEAD-2008-0019488

PATIENT
  Sex: Male

DRUGS (11)
  1. LETAIRIS [Suspect]
     Indication: PULMONARY ARTERIAL HYPERTENSION
     Route: 048
     Dates: start: 20080828
  2. LETAIRIS [Suspect]
     Indication: SYSTEMIC SCLEROSIS
  3. ACETYLCYST [Concomitant]
     Route: 055
  4. ALBUTEROL [Concomitant]
     Route: 055
  5. INSULIN REGULAR [Concomitant]
     Route: 058
  6. KEPPRA [Concomitant]
     Route: 048
  7. NIACIN TR [Concomitant]
     Route: 048
  8. K-DUR [Concomitant]
     Route: 048
  9. PREDNISONE PAK [Concomitant]
     Route: 048
  10. PRILOSEC [Concomitant]
     Route: 048
  11. SIMVASTATIN [Concomitant]
     Route: 048

REACTIONS (2)
  - PULMONARY EMBOLISM [None]
  - SUDDEN CARDIAC DEATH [None]
